FAERS Safety Report 16530110 (Version 1)
Quarter: 2019Q3

REPORT INFORMATION
  Report Type: Spontaneous
  Country: PL (occurrence: PL)
  Receive Date: 20190704
  Receipt Date: 20190704
  Transmission Date: 20191004
  Serious: Yes (Hospitalization)
  Sender: FDA-Public Use
  Company Number: PL-TEVA-2019-PL-1070647

PATIENT
  Age: 52 Year
  Sex: Male

DRUGS (6)
  1. RITONAVIR. [Suspect]
     Active Substance: RITONAVIR
     Indication: HIV INFECTION
     Dosage: 100 MILLIGRAM DAILY;
     Route: 065
  2. ATAZANAVIR. [Concomitant]
     Active Substance: ATAZANAVIR
     Indication: HIV INFECTION
     Route: 065
  3. DARUNAVIR [Suspect]
     Active Substance: DARUNAVIR
     Indication: HIV INFECTION
     Dosage: QD
     Route: 065
  4. TENOFOVIR DISOPROXIL FUMARATE. [Suspect]
     Active Substance: TENOFOVIR DISOPROXIL FUMARATE
     Indication: HIV INFECTION
     Dosage: QD
     Route: 065
  5. LAMIVUDINE/ZIDOVUDINE [Suspect]
     Active Substance: LAMIVUDINE\ZIDOVUDINE
     Indication: HIV INFECTION
     Dosage: TWICE A DAY.
     Route: 065
  6. EMTRICITABINE W/TENOFOVIR [Suspect]
     Active Substance: EMTRICITABINE\TENOFOVIR DISOPROXIL
     Indication: HIV INFECTION
     Dosage: ONCE A DAY (QD)
     Route: 065

REACTIONS (10)
  - Vth nerve injury [Recovered/Resolved]
  - Facial paralysis [Recovered/Resolved]
  - Psychomotor retardation [Recovered/Resolved]
  - Immune reconstitution inflammatory syndrome [Recovered/Resolved]
  - Confusional state [Recovered/Resolved]
  - Pathogen resistance [Recovered/Resolved]
  - Hyperproteinaemia [Recovered/Resolved]
  - VIIIth nerve injury [Recovered/Resolved]
  - Cerebellar syndrome [Recovered/Resolved]
  - Pleocytosis [Recovered/Resolved]
